FAERS Safety Report 7775381-1 (Version None)
Quarter: 2011Q3

REPORT INFORMATION
  Report Type: 
  Country: None (occurrence: None)
  Receive Date: 20110923
  Receipt Date: 20110919
  Transmission Date: 20111222
  Serious: Yes (Other)
  Sender: FDA-Public Use
  Company Number: PHHY2011CA84076

PATIENT
  Sex: Female

DRUGS (1)
  1. CLOZAPINE [Suspect]
     Dates: start: 20030323

REACTIONS (1)
  - KIDNEY INFECTION [None]
